FAERS Safety Report 7659257-6 (Version None)
Quarter: 2011Q3

REPORT INFORMATION
  Report Type: 
  Country: None (occurrence: None)
  Receive Date: 20110805
  Receipt Date: 20110727
  Transmission Date: 20111222
  Serious: Yes (Death, Other)
  Sender: FDA-Public Use
  Company Number: US-NOVOPROD-332938

PATIENT
  Age: 86 Year
  Sex: Male

DRUGS (1)
  1. NOVOSEVEN RT [Suspect]
     Indication: ACQUIRED HAEMOPHILIA
     Route: 058

REACTIONS (2)
  - DRUG INEFFECTIVE [None]
  - MULTI-ORGAN FAILURE [None]
